FAERS Safety Report 7974591-8 (Version None)
Quarter: 2011Q4

REPORT INFORMATION
  Report Type: 
  Country: None (occurrence: None)
  Receive Date: 20111213
  Receipt Date: 20111203
  Transmission Date: 20120403
  Serious: Yes (Hospitalization)
  Sender: FDA-Public Use
  Company Number: US-BAYER-2011-028419

PATIENT
  Age: 42 Year
  Sex: Female
  Weight: 124.72 kg

DRUGS (5)
  1. YAZ [Suspect]
     Indication: CONTRACEPTION
     Dosage: UNK
     Dates: start: 20080501, end: 20090801
  2. IBUPROFEN [Concomitant]
     Dosage: 600 MG, PRN
     Route: 048
  3. ABILIFY [Concomitant]
     Dosage: 15 MG, QD
     Route: 048
  4. ZOLOFT [Concomitant]
     Dosage: 200 MG, QD
     Route: 048
  5. WELLBUTRIN [Concomitant]
     Dosage: UNK UNK, QD
     Route: 048

REACTIONS (6)
  - INJURY [None]
  - EMOTIONAL DISTRESS [None]
  - GENERAL PHYSICAL HEALTH DETERIORATION [None]
  - PAIN [None]
  - ANXIETY [None]
  - MYOCARDIAL INFARCTION [None]
